FAERS Safety Report 9879474 (Version 3)
Quarter: 2014Q2

REPORT INFORMATION
  Report Type: Spontaneous
  Country: US (occurrence: US)
  Receive Date: 20140206
  Receipt Date: 20140410
  Transmission Date: 20141212
  Serious: Yes (Other)
  Sender: FDA-Public Use
  Company Number: US-ELI_LILLY_AND_COMPANY-US201401011285

PATIENT
  Age: 60 Year
  Sex: Female
  Weight: 91.61 kg

DRUGS (20)
  1. ADCIRCA [Suspect]
     Indication: PULMONARY HYPERTENSION
     Dosage: 40 MG, QD
     Route: 048
     Dates: start: 20131017, end: 20140127
  2. PREDNISONE [Suspect]
     Dosage: 40 MG, QD
  3. PREDNISONE [Suspect]
     Dosage: 15 MG, QD
  4. ABILIFY [Concomitant]
     Dosage: 20 MG, UNK
  5. ASPIRIN [Concomitant]
     Dosage: 81 MG, UNK
  6. CETRINE [Concomitant]
  7. DAYPRO [Concomitant]
     Dosage: 600 MG, UNK
  8. IRON [Concomitant]
  9. CLONAZEPAM [Concomitant]
     Dosage: 0.5 MG, UNK
  10. LAMICTAL [Concomitant]
  11. MAXALT                             /01406501/ [Concomitant]
  12. SYNTHYROID [Concomitant]
  13. OMEPRAZOLE [Concomitant]
     Dosage: 40 MG, UNK
  14. TRAZODONE [Concomitant]
     Dosage: 150 MG, UNK
  15. MULTIVITAMIN                       /00831701/ [Concomitant]
  16. WELLBUTRIN [Concomitant]
  17. TIZANIDINE [Concomitant]
     Dosage: 4 MG, UNK
  18. VERAPAMIL [Concomitant]
  19. VICODIN [Concomitant]
  20. ZOCOR [Concomitant]

REACTIONS (3)
  - Vision blurred [Not Recovered/Not Resolved]
  - Pneumonia [Unknown]
  - Cataract [Not Recovered/Not Resolved]
